FAERS Safety Report 20131462 (Version 1)
Quarter: 2021Q4

REPORT INFORMATION
  Report Type: Spontaneous
  Country: ES (occurrence: ES)
  Receive Date: 20211130
  Receipt Date: 20211130
  Transmission Date: 20220303
  Serious: Yes (Other)
  Sender: FDA-Public Use
  Company Number: ES-ROCHE-2951501

PATIENT
  Age: 83 Year
  Sex: Female

DRUGS (1)
  1. BEVACIZUMAB [Suspect]
     Active Substance: BEVACIZUMAB
     Indication: Neovascular age-related macular degeneration
     Dosage: UNK
     Route: 050

REACTIONS (3)
  - Retinal pigment epithelial tear [Unknown]
  - Off label use [Unknown]
  - Off label use [Unknown]
